FAERS Safety Report 11179543 (Version 1)
Quarter: 2015Q2

REPORT INFORMATION
  Report Type: Report from Study
  Country: NL (occurrence: NL)
  Receive Date: 20150611
  Receipt Date: 20150611
  Transmission Date: 20150821
  Serious: Yes (Other)
  Sender: FDA-Public Use
  Company Number: NL-AMGEN-NLDSL2015055323

PATIENT
  Age: 59 Year
  Sex: Male

DRUGS (2)
  1. XGEVA [Suspect]
     Active Substance: DENOSUMAB
     Indication: PROPHYLAXIS
     Dosage: 1.7 ML, Q4WK
     Route: 058
  2. LUCRIN [Concomitant]
     Active Substance: LEUPROLIDE ACETATE

REACTIONS (4)
  - Cough [Unknown]
  - Rib fracture [Unknown]
  - Back pain [Unknown]
  - Nasopharyngitis [Unknown]
